FAERS Safety Report 21635749 (Version 2)
Quarter: 2023Q1

REPORT INFORMATION
  Report Type: Spontaneous
  Country: JP (occurrence: JP)
  Receive Date: 20221123
  Receipt Date: 20230123
  Transmission Date: 20230417
  Serious: Yes (Death, Other)
  Sender: FDA-Public Use
  Company Number: JP-SAKK-2022SA477698AA

PATIENT
  Age: 85 Year
  Sex: Female

DRUGS (3)
  1. KEVZARA [Suspect]
     Active Substance: SARILUMAB
     Indication: Rheumatoid arthritis
     Dosage: 200 MG, QOW
     Route: 058
     Dates: start: 20181206
  2. BUCILLAMINE [Suspect]
     Active Substance: BUCILLAMINE
     Indication: Rheumatoid arthritis
     Dosage: 100 MG, QD
     Route: 048
     Dates: start: 20130829
  3. MIZORIBINE [Suspect]
     Active Substance: MIZORIBINE
     Indication: Rheumatoid arthritis
     Dosage: 150 MG, QD
     Route: 048
     Dates: start: 20120406

REACTIONS (1)
  - Arrhythmia [Fatal]

NARRATIVE: CASE EVENT DATE: 20221115
